FAERS Safety Report 9574795 (Version 1)
Quarter: 2013Q4

REPORT INFORMATION
  Report Type: Spontaneous
  Country: US (occurrence: US)
  Receive Date: 20131001
  Receipt Date: 20131001
  Transmission Date: 20140711
  Serious: Yes (Hospitalization, Other)
  Sender: FDA-Public Use
  Company Number: US-JNJFOC-20130914865

PATIENT
  Age: 48 Year
  Sex: Male

DRUGS (3)
  1. REOPRO [Suspect]
     Indication: THROMBOSIS
     Route: 042
  2. EFFIENT [Suspect]
     Indication: STENT PLACEMENT
     Dosage: LOADING DOSE
     Route: 048
  3. EFFIENT [Suspect]
     Indication: PERCUTANEOUS CORONARY INTERVENTION
     Dosage: LOADING DOSE
     Route: 048

REACTIONS (2)
  - Device occlusion [Unknown]
  - Drug ineffective [Not Recovered/Not Resolved]
